FAERS Safety Report 6757997-4 (Version None)
Quarter: 2010Q2

REPORT INFORMATION
  Report Type: 
  Country: None (occurrence: None)
  Receive Date: 20100607
  Receipt Date: 20100525
  Transmission Date: 20101027
  Serious: Yes (Other)
  Sender: FDA-Public Use
  Company Number: PHHY2010GR33473

PATIENT
  Age: 60 Year
  Sex: Male

DRUGS (2)
  1. RASILEZ [Suspect]
     Indication: HYPERTENSION
     Dosage: UNK
     Dates: start: 20100301, end: 20100518
  2. EXFORGE [Concomitant]
     Dosage: UNK
     Dates: end: 20100518

REACTIONS (2)
  - DERMATITIS [None]
  - RASH GENERALISED [None]
